FAERS Safety Report 4697610-3 (Version None)
Quarter: 2005Q2

REPORT INFORMATION
  Report Type: 
  Country: None (occurrence: None)
  Receive Date: 20050620
  Receipt Date: 20050511
  Transmission Date: 20051028
  Serious: No
  Sender: FDA-Public Use
  Company Number: US-YAMANOUCHI-YPA20050270

PATIENT
  Age: 85 Year
  Sex: Male
  Weight: 83.9154 kg

DRUGS (9)
  1. VESICARE [Suspect]
     Indication: URGE INCONTINENCE
     Dosage: 5 MG QD PO
     Route: 048
     Dates: start: 20050509
  2. TERAZOSIN HCL [Concomitant]
  3. COUMADIN [Concomitant]
  4. TOPROL-XL [Concomitant]
  5. LANOXIN [Concomitant]
  6. ZOCOR [Concomitant]
  7. ACIPHEX [Concomitant]
  8. PLAVIX [Concomitant]
  9. CENTRUM [Concomitant]

REACTIONS (3)
  - BLOOD URINE PRESENT [None]
  - DYSURIA [None]
  - POLLAKIURIA [None]
